FAERS Safety Report 14213291 (Version 1)
Quarter: 2017Q4

REPORT INFORMATION
  Report Type: Spontaneous
  Country: US (occurrence: US)
  Receive Date: 20171122
  Receipt Date: 20171122
  Transmission Date: 20180321
  Serious: Yes (Other)
  Sender: FDA-Public Use
  Company Number: None

PATIENT
  Sex: Male
  Weight: 72.9 kg

DRUGS (6)
  1. TAMSULOSINE HCL [Concomitant]
     Active Substance: TAMSULOSIN
  2. METHYL SULFONYL METHANE [Concomitant]
  3. ZETIA [Suspect]
     Active Substance: EZETIMIBE
     Indication: BLOOD CHOLESTEROL ABNORMAL
     Dosage: ?          QUANTITY:90 TABLET(S);?
     Route: 048
  4. CENTRUM SILVER [Concomitant]
     Active Substance: MINERALS\VITAMINS
  5. AMLODIPINE BESYLATE. [Concomitant]
     Active Substance: AMLODIPINE BESYLATE
  6. PRESERVISION AREDS 2 [Concomitant]
     Active Substance: MINERALS\VITAMINS

REACTIONS (3)
  - Testicular swelling [None]
  - Testicular disorder [None]
  - Testicular pain [None]

NARRATIVE: CASE EVENT DATE: 20170623
